FAERS Safety Report 24467382 (Version 1)
Quarter: 2024Q4

REPORT INFORMATION
  Report Type: Report from Study
  Country: US (occurrence: US)
  Receive Date: 20241018
  Receipt Date: 20241018
  Transmission Date: 20250114
  Serious: No
  Sender: ROCHE
  Company Number: US-ROCHE-3559703

PATIENT
  Age: 60 Year
  Sex: Female

DRUGS (8)
  1. XOLAIR [Suspect]
     Active Substance: OMALIZUMAB
     Indication: Asthma
     Dosage: LAST INJECTION DATE: 25/MAR/2024
     Route: 058
  2. TRELEGY ELLIPTA [Concomitant]
     Active Substance: FLUTICASONE FUROATE\UMECLIDINIUM BROMIDE\VILANTEROL TRIFENATATE
  3. NORVASC [Concomitant]
     Active Substance: AMLODIPINE BESYLATE
  4. ZYRTEC [Concomitant]
     Active Substance: CETIRIZINE HYDROCHLORIDE
  5. XALATAN [Concomitant]
     Active Substance: LATANOPROST
  6. COZAAR [Concomitant]
     Active Substance: LOSARTAN POTASSIUM
  7. SINGULAIR [Concomitant]
     Active Substance: MONTELUKAST SODIUM
  8. DELTASONE [Concomitant]
     Active Substance: PREDNISONE

REACTIONS (5)
  - Off label use [Unknown]
  - Gastrooesophageal reflux disease [Unknown]
  - Insomnia [Unknown]
  - Fatigue [Unknown]
  - Weight abnormal [Unknown]
